FAERS Safety Report 19010548 (Version 3)
Quarter: 2022Q1

REPORT INFORMATION
  Report Type: Report from Study
  Country: CO (occurrence: CO)
  Receive Date: 20210316
  Receipt Date: 20220330
  Transmission Date: 20220423
  Serious: Yes (Hospitalization, Other)
  Sender: FDA-Public Use
  Company Number: NVSC2021CO039627

PATIENT
  Sex: Female
  Weight: 45 kg

DRUGS (2)
  1. TASIGNA [Suspect]
     Active Substance: NILOTINIB
     Indication: Chronic myeloid leukaemia
     Dosage: 800 MG (2 TABLETS OF 200 MG EVERY 12 HRS/DAY)
     Route: 048
  2. TASIGNA [Suspect]
     Active Substance: NILOTINIB
     Dosage: 600 MG (2 TABLETS OF 150 MG EVERY 12 HRS/DAY)
     Route: 048

REACTIONS (12)
  - Chronic myeloid leukaemia [Unknown]
  - Pain in extremity [Unknown]
  - Fatigue [Unknown]
  - Splenitis [Recovered/Resolved]
  - Haematoma [Recovered/Resolved]
  - Pyrexia [Recovered/Resolved]
  - Headache [Recovered/Resolved]
  - Abdominal pain upper [Recovered/Resolved]
  - White blood cell count increased [Unknown]
  - General physical health deterioration [Unknown]
  - Product dose omission issue [Unknown]
  - Product supply issue [Unknown]
